FAERS Safety Report 25368719 (Version 2)
Quarter: 2025Q2

REPORT INFORMATION
  Report Type: Spontaneous
  Country: AT (occurrence: AT)
  Receive Date: 20250528
  Receipt Date: 20250611
  Transmission Date: 20250717
  Serious: Yes (Other)
  Sender: NOVARTIS
  Company Number: AT-002147023-NVSC2025AT083631

PATIENT
  Sex: Female

DRUGS (1)
  1. LETROZOLE [Suspect]
     Active Substance: LETROZOLE
     Indication: Ovarian cancer
     Route: 065
     Dates: start: 201903, end: 202402

REACTIONS (4)
  - Ovarian cancer recurrent [Unknown]
  - Metastasis [Unknown]
  - Malignant ascites [Unknown]
  - Off label use [Unknown]

NARRATIVE: CASE EVENT DATE: 20240212
